FAERS Safety Report 5212522-4 (Version None)
Quarter: 2007Q1

REPORT INFORMATION
  Report Type: 
  Country: None (occurrence: None)
  Receive Date: 20070118
  Receipt Date: 20070105
  Transmission Date: 20070707
  Serious: Yes (Hospitalization, Other)
  Sender: FDA-Public Use
  Company Number: US-SHR-US-2007-000573

PATIENT
  Age: 53 Year
  Sex: Female

DRUGS (1)
  1. BETASERON [Suspect]
     Indication: MULTIPLE SCLEROSIS
     Dosage: 8 MIU, 3X/WEEK
     Route: 058
     Dates: start: 20030819

REACTIONS (4)
  - HEMIPLEGIA [None]
  - INFLUENZA LIKE ILLNESS [None]
  - INJECTION SITE DISCOLOURATION [None]
  - LIPOATROPHY [None]
